FAERS Safety Report 16203631 (Version 3)
Quarter: 2019Q2

REPORT INFORMATION
  Report Type: Spontaneous
  Country: PL (occurrence: PL)
  Receive Date: 20190416
  Receipt Date: 20190626
  Transmission Date: 20190711
  Serious: Yes (Other)
  Sender: FDA-Public Use
  Company Number: PL-009507513-1904POL006606

PATIENT
  Sex: Female

DRUGS (2)
  1. RIBAVIRIN. [Suspect]
     Active Substance: RIBAVIRIN
     Indication: HEPATITIS C
     Dosage: 600 MG
     Route: 048
     Dates: start: 20171109, end: 20180202
  2. SOVALDI [Suspect]
     Active Substance: SOFOSBUVIR
     Indication: HEPATITIS C
     Dosage: 400 MG
     Route: 048
     Dates: start: 20171109, end: 20180202

REACTIONS (1)
  - Treatment failure [Unknown]

NARRATIVE: CASE EVENT DATE: 20180427
